FAERS Safety Report 21166707 (Version 4)
Quarter: 2023Q2

REPORT INFORMATION
  Report Type: Spontaneous
  Country: IN (occurrence: IN)
  Receive Date: 20220803
  Receipt Date: 20230615
  Transmission Date: 20230721
  Serious: Yes (Hospitalization)
  Sender: FDA-Public Use
  Company Number: IN-PFIZER INC-202100977488

PATIENT
  Age: 58 Year
  Sex: Female
  Weight: 57 kg

DRUGS (3)
  1. PALBOCICLIB [Suspect]
     Active Substance: PALBOCICLIB
     Dosage: 125 MG, CYCLIC(1-0-0, AFTER FOOD: 1/2 HR,FOR 21  DAYS DAILY FOLLOWED BY 7 DAYS OFF)
     Route: 048
     Dates: start: 20210709
  2. PALBOCICLIB [Suspect]
     Active Substance: PALBOCICLIB
     Dosage: 125 MG
     Route: 048
     Dates: start: 20210824, end: 202302
  3. FULVESTRANT [Concomitant]
     Active Substance: FULVESTRANT
     Dosage: 500 MG((250MG IN EACH BUTTOCK), DAY 1, 15,29- EVERY 28 DAYS
     Route: 030

REACTIONS (5)
  - General physical health deterioration [Unknown]
  - Vomiting [Unknown]
  - Asthenia [Unknown]
  - Off label use [Unknown]
  - Neoplasm progression [Unknown]
